FAERS Safety Report 4838459-8 (Version None)
Quarter: 2005Q4

REPORT INFORMATION
  Report Type: 
  Country: None (occurrence: None)
  Receive Date: 20051129
  Receipt Date: 20051020
  Transmission Date: 20060501
  Serious: Yes (Other)
  Sender: FDA-Public Use
  Company Number: PHEH2005US11712

PATIENT
  Age: 54 Year
  Sex: Male

DRUGS (3)
  1. CLOZARIL [Suspect]
     Indication: SCHIZOPHRENIA
     Dosage: 200MG QAM, 400MG QHS
     Route: 048
  2. RISPERDAL [Concomitant]
     Dosage: 4 MG, QHS
  3. COGENTIN [Concomitant]
     Dosage: 0.5 MG, BID

REACTIONS (3)
  - LEUKOCYTOSIS [None]
  - NEUTROPHIL COUNT INCREASED [None]
  - NON-HODGKIN'S LYMPHOMA [None]
